FAERS Safety Report 15036311 (Version 1)
Quarter: 2018Q2

REPORT INFORMATION
  Report Type: Spontaneous
  Country: US (occurrence: US)
  Receive Date: 20180620
  Receipt Date: 20180620
  Transmission Date: 20180711
  Serious: Yes (Other)
  Sender: FDA-Public Use
  Company Number: US-AMGEN-USASP2018080794

PATIENT
  Age: 66 Year
  Sex: Male
  Weight: 65.8 kg

DRUGS (2)
  1. NPLATE [Suspect]
     Active Substance: ROMIPLOSTIM
     Dosage: 300 MG, QWK
     Route: 065
     Dates: start: 2018
  2. NPLATE [Suspect]
     Active Substance: ROMIPLOSTIM
     Indication: IMMUNE THROMBOCYTOPENIC PURPURA
     Dosage: 4 MUG/KG, UNK
     Route: 065
     Dates: start: 2012

REACTIONS (5)
  - Gastrointestinal haemorrhage [Unknown]
  - Metal poisoning [Unknown]
  - Bone marrow failure [Unknown]
  - Platelet count decreased [Unknown]
  - Therapeutic response decreased [Unknown]

NARRATIVE: CASE EVENT DATE: 2018
